FAERS Safety Report 7155278-0 (Version None)
Quarter: 2010Q4

REPORT INFORMATION
  Report Type: 
  Country: None (occurrence: None)
  Receive Date: 20101214
  Receipt Date: 20091120
  Transmission Date: 20110411
  Serious: No
  Sender: FDA-Public Use
  Company Number: US-AMGEN-KDL376020

PATIENT

DRUGS (8)
  1. ENBREL [Suspect]
     Indication: PRODUCT USED FOR UNKNOWN INDICATION
     Dosage: 50 MG, QWK
     Route: 058
  2. METHOTREXATE [Concomitant]
     Dosage: 2.5 MG, UNK
  3. HYDROXYCHLOROQUINE [Concomitant]
     Dosage: 200 MG, UNK
  4. FOLIC ACID [Concomitant]
     Dosage: 1 MG, UNK
  5. ASCORBIC ACID [Concomitant]
     Dosage: 1000 MG, UNK
  6. FISH OIL [Concomitant]
  7. ERGOCALCIFEROL [Concomitant]
     Dosage: 1000 IU, UNK
  8. MULTI-VITAMINS [Concomitant]

REACTIONS (1)
  - HEADACHE [None]
